FAERS Safety Report 10285864 (Version 1)
Quarter: 2014Q3

REPORT INFORMATION
  Report Type: Spontaneous
  Country: US (occurrence: None)
  Receive Date: 20140703
  Receipt Date: 20140703
  Transmission Date: 20150326
  Serious: Yes (Hospitalization)
  Sender: FDA-Public Use
  Company Number: UNT-2014-000105

PATIENT
  Age: 50 Year
  Sex: Female
  Weight: 103.4 kg

DRUGS (2)
  1. REMODULIN [Suspect]
     Active Substance: TREPROSTINIL
     Indication: COR PULMONALE CHRONIC
     Dosage: 0.050 UG/KG/MIN
     Route: 058
     Dates: start: 20091002
  2. ADCIRCA [Concomitant]
     Active Substance: TADALAFIL

REACTIONS (4)
  - Infusion site abscess [None]
  - Infusion site infection [None]
  - Cellulitis [None]
  - Staphylococcal infection [None]

NARRATIVE: CASE EVENT DATE: 20140424
